FAERS Safety Report 8504269-3 (Version None)
Quarter: 2012Q3

REPORT INFORMATION
  Report Type: 
  Country: None (occurrence: None)
  Receive Date: 20120711
  Receipt Date: 20120703
  Transmission Date: 20120928
  Serious: Yes (Other)
  Sender: FDA-Public Use
  Company Number: US-ABBOTT-12P-163-0918136-00

PATIENT
  Sex: Male
  Weight: 141.19 kg

DRUGS (3)
  1. SIMCOR [Suspect]
     Indication: DYSLIPIDAEMIA
     Dosage: 1000MG/40MG
     Dates: start: 20100930, end: 20110909
  2. SIMCOR [Suspect]
  3. ANESTHESIA [Suspect]
     Indication: SURGERY
     Dates: start: 20111027, end: 20111027

REACTIONS (3)
  - HIGH DENSITY LIPOPROTEIN DECREASED [None]
  - INGUINAL HERNIA [None]
  - BLOOD TRIGLYCERIDES INCREASED [None]
